FAERS Safety Report 17247050 (Version 1)
Quarter: 2019Q4

REPORT INFORMATION
  Report Type: Spontaneous
  Country: US (occurrence: US)
  Receive Date: 20191213
  Receipt Date: 20191213
  Transmission Date: 20200122
  Serious: No
  Sender: FDA-Public Use
  Company Number: None

PATIENT
  Age: 54 Year
  Sex: Female

DRUGS (1)
  1. KISQALI FEMARA CO-PACK [Suspect]
     Active Substance: LETROZOLE\RIBOCICLIB
     Indication: BREAST CANCER
     Dosage: ?          OTHER DOSE:600MG/2.5MG;?
     Route: 048
     Dates: start: 20191025

REACTIONS (1)
  - Alopecia [None]

NARRATIVE: CASE EVENT DATE: 201910
